FAERS Safety Report 8455582-X (Version None)
Quarter: 2012Q2

REPORT INFORMATION
  Report Type: 
  Country: None (occurrence: None)
  Receive Date: 20120621
  Receipt Date: 20120608
  Transmission Date: 20120825
  Serious: No
  Sender: FDA-Public Use
  Company Number: US-B.I. PHARMACEUTICALS,INC./RIDGEFIELD-2012-BP-13555BP

PATIENT
  Sex: Female
  Weight: 101 kg

DRUGS (1)
  1. ZANTAC 150 [Suspect]
     Dosage: 300 MG

REACTIONS (5)
  - COLITIS [None]
  - OSTEOPOROSIS [None]
  - DRUG INEFFECTIVE [None]
  - DYSPEPSIA [None]
  - ABNORMAL LOSS OF WEIGHT [None]
